FAERS Safety Report 15099055 (Version 2)
Quarter: 2018Q3

REPORT INFORMATION
  Report Type: Spontaneous
  Country: PL (occurrence: PL)
  Receive Date: 20180702
  Receipt Date: 20180712
  Transmission Date: 20181010
  Serious: Yes (Other)
  Sender: FDA-Public Use
  Company Number: PL-TEVA-2018-PL-920105

PATIENT

DRUGS (1)
  1. WILZIN [Suspect]
     Active Substance: ZINC ACETATE
     Indication: HEPATO-LENTICULAR DEGENERATION
     Route: 048

REACTIONS (2)
  - Abdominal pain [Recovered/Resolved]
  - Gastritis erosive [Recovered/Resolved]
